FAERS Safety Report 16908185 (Version 2)
Quarter: 2019Q4

REPORT INFORMATION
  Report Type: Spontaneous
  Country: US (occurrence: US)
  Receive Date: 20191011
  Receipt Date: 20191112
  Transmission Date: 20200122
  Serious: No
  Sender: FDA-Public Use
  Company Number: US-PFIZER INC-2019436939

PATIENT
  Age: 30 Year
  Sex: Male
  Weight: 76.64 kg

DRUGS (2)
  1. EUCRISA [Suspect]
     Active Substance: CRISABOROLE
     Indication: DERMATITIS ATOPIC
     Dosage: UNK
  2. EUCRISA [Suspect]
     Active Substance: CRISABOROLE
     Dosage: UNK, DAILY (APPLY TO AFFECTED AREAS DAILY)
     Route: 061
     Dates: start: 20191004, end: 20191004

REACTIONS (6)
  - Application site pain [Unknown]
  - Swelling face [Unknown]
  - Eye swelling [Recovered/Resolved]
  - Application site erythema [Unknown]
  - Drug hypersensitivity [Unknown]
  - Application site pruritus [Unknown]

NARRATIVE: CASE EVENT DATE: 20191004
